FAERS Safety Report 6303147-8 (Version None)
Quarter: 2009Q3

REPORT INFORMATION
  Report Type: 
  Country: None (occurrence: None)
  Receive Date: 20090810
  Receipt Date: 20090106
  Transmission Date: 20100115
  Serious: No
  Sender: FDA-Public Use
  Company Number: A0762530A

PATIENT
  Age: 42 Year
  Sex: Female

DRUGS (12)
  1. PAROXETINE HCL [Suspect]
     Indication: DEPRESSION
     Dosage: 30MG PER DAY
     Route: 048
     Dates: start: 20060701, end: 20081230
  2. IMMUNE GLOBULIN INTRAVENOUS (HUMAN) [Concomitant]
  3. ZOMETA [Concomitant]
  4. REVLIMID [Concomitant]
  5. SYNTHROID [Concomitant]
  6. DEXAMETHASONE [Concomitant]
  7. ASPIRIN [Concomitant]
  8. PYRIDOXINE HCL [Concomitant]
  9. VITAMIN B-12 [Concomitant]
  10. BIRTH CONTROL [Concomitant]
  11. ZANTAC [Concomitant]
  12. XYLOL [Concomitant]

REACTIONS (3)
  - DIARRHOEA [None]
  - DIZZINESS [None]
  - WITHDRAWAL SYNDROME [None]
